FAERS Safety Report 5014981-9 (Version None)
Quarter: 2006Q2

REPORT INFORMATION
  Report Type: 
  Country: None (occurrence: None)
  Receive Date: 20060414
  Receipt Date: 20060223
  Transmission Date: 20061013
  Serious: No
  Sender: FDA-Public Use
  Company Number: 2006SP000908

PATIENT
  Age: 70 Year
  Sex: Female

DRUGS (7)
  1. LUNESTA [Suspect]
     Indication: INSOMNIA
     Dosage: SEE IMAGE
     Route: 048
     Dates: start: 20051201, end: 20051201
  2. LUNESTA [Suspect]
     Indication: INSOMNIA
     Dosage: SEE IMAGE
     Route: 048
     Dates: start: 20060101
  3. DEPAKOTE [Concomitant]
  4. GALANTAMINE HYDROBROMIDE [Concomitant]
  5. HYDROBROMIDE [Concomitant]
  6. LEVOTHROID [Concomitant]
  7. SEROQUEL [Concomitant]

REACTIONS (2)
  - AGITATION [None]
  - INSOMNIA [None]
